FAERS Safety Report 9045501 (Version 2)
Quarter: 2013Q2

REPORT INFORMATION
  Report Type: Report from Study
  Country: US (occurrence: US)
  Receive Date: 20130131
  Receipt Date: 20130415
  Transmission Date: 20140414
  Serious: Yes (Hospitalization)
  Sender: FDA-Public Use
  Company Number: US-US-EMD SERONO, INC.-7190011

PATIENT
  Age: 65 Year
  Sex: Female

DRUGS (3)
  1. REBIF [Suspect]
     Indication: MULTIPLE SCLEROSIS
     Route: 058
     Dates: start: 20030725
  2. INSULIN [Concomitant]
     Indication: DIABETES MELLITUS
  3. BABY ASPIRIN [Concomitant]
     Indication: PROPHYLAXIS
     Dates: start: 2009, end: 201212

REACTIONS (4)
  - Pneumonia [Recovered/Resolved]
  - Gastric ulcer haemorrhage [Recovered/Resolved]
  - Sleep apnoea syndrome [Not Recovered/Not Resolved]
  - Injection site pain [Unknown]
